FAERS Safety Report 8530787-8 (Version None)
Quarter: 2012Q2

REPORT INFORMATION
  Report Type: 
  Country: None (occurrence: None)
  Receive Date: 20120411
  Receipt Date: 20120118
  Transmission Date: 20120825
  Serious: No
  Sender: FDA-Public Use
  Company Number: PHEH2012US001450

PATIENT
  Sex: Female

DRUGS (15)
  1. ILARIS [Suspect]
     Indication: FAMILIAL MEDITERRANEAN FEVER
     Dosage: 150 MG, Q8W, SUBCUTANEOUS
     Route: 058
     Dates: start: 20111214
  2. ILARIS [Suspect]
     Indication: FAMILIAL MEDITERRANEAN FEVER
     Dosage: 150 MG, Q8W, SUBCUTANEOUS
     Route: 058
     Dates: start: 20111019
  3. GABAPENTIN [Concomitant]
  4. CELEBREX [Concomitant]
  5. SUCRALFATE [Concomitant]
  6. PRISTIQ [Concomitant]
  7. PREDNISONE TAB [Concomitant]
  8. VENLAFAXINE HCL [Concomitant]
  9. TRAZODONE HCL [Concomitant]
  10. LOVAZA [Concomitant]
  11. PLAQUENIL [Concomitant]
  12. ARISA (CARISOPRODOL, PHENYLBUTAZONE) [Concomitant]
  13. TRAMADOL HCL [Concomitant]
  14. LORAZEPAM [Concomitant]
  15. ZOLPIDEM [Concomitant]

REACTIONS (1)
  - HEPATITIS C [None]
